FAERS Safety Report 10068800 (Version 1)
Quarter: 2014Q2

REPORT INFORMATION
  Report Type: Spontaneous
  Country: NL (occurrence: NL)
  Receive Date: 20140409
  Receipt Date: 20140409
  Transmission Date: 20141212
  Serious: Yes (Hospitalization)
  Sender: FDA-Public Use
  Company Number: NL-ABBVIE-14P-114-1219675-00

PATIENT
  Age: 45 Year
  Sex: Male

DRUGS (5)
  1. HUMIRA [Suspect]
     Indication: SARCOIDOSIS
     Route: 058
     Dates: start: 2011
  2. HUMIRA [Suspect]
     Route: 058
  3. PREDNISON [Concomitant]
     Indication: SARCOIDOSIS
     Route: 065
     Dates: start: 201209
  4. METHOTREXATE [Concomitant]
     Indication: PRODUCT USED FOR UNKNOWN INDICATION
     Route: 065
  5. METHOTREXATE [Concomitant]
     Indication: PRODUCT USED FOR UNKNOWN INDICATION

REACTIONS (7)
  - Skin exfoliation [Recovered/Resolved]
  - Skin disorder [Unknown]
  - Polyarthritis [Unknown]
  - Skin discolouration [Unknown]
  - Haemophilus infection [Recovered/Resolved]
  - Skin mass [Unknown]
  - Infection [Recovered/Resolved]
